FAERS Safety Report 16409034 (Version 3)
Quarter: 2019Q3

REPORT INFORMATION
  Report Type: Spontaneous
  Country: ZA (occurrence: ZA)
  Receive Date: 20190610
  Receipt Date: 20190711
  Transmission Date: 20191004
  Serious: Yes (Disabling, Other)
  Sender: FDA-Public Use
  Company Number: ZA-ROCHE-2330077

PATIENT
  Sex: Male

DRUGS (1)
  1. AVASTIN [Suspect]
     Active Substance: BEVACIZUMAB
     Indication: AGE-RELATED MACULAR DEGENERATION
     Dosage: 100MG/4ML
     Route: 050
     Dates: start: 20190524, end: 20190524

REACTIONS (2)
  - Blindness [Recovered/Resolved]
  - Suspected transmission of an infectious agent via product [Unknown]
